FAERS Safety Report 8205644 (Version 7)
Quarter: 2014Q2

REPORT INFORMATION
  Report Type: Report from Study
  Country: US (occurrence: US)
  Receive Date: 20111028
  Receipt Date: 20140428
  Transmission Date: 20141212
  Serious: Yes (Congenital Anomaly, Other)
  Sender: FDA-Public Use
  Company Number: US-UCBSA-043871

PATIENT
  Age: 2 Year
  Sex: Male
  Weight: 2.64 kg

DRUGS (12)
  1. KEPPRA [Suspect]
     Dosage: TOTAL DAILY DOSE: 3000 MG
     Route: 063
     Dates: start: 20110227
  2. KEPPRA [Suspect]
     Dosage: TOTAL DAILY DOSE: 3000 MG
     Route: 064
     Dates: start: 2010, end: 20110227
  3. PRENATAL VITAMINS [Concomitant]
     Indication: PREGNANCY
     Route: 064
     Dates: start: 2010, end: 20110227
  4. PRENATAL VITAMINS [Concomitant]
     Indication: PREGNANCY
     Route: 063
     Dates: start: 20110227
  5. FOLIC ACID [Concomitant]
     Indication: PREGNANCY
     Route: 064
     Dates: start: 2010, end: 20110227
  6. FOLIC ACID [Concomitant]
     Indication: PREGNANCY
     Route: 063
     Dates: start: 20110227
  7. BABY ASPIRIN [Concomitant]
     Indication: METHYLENETETRAHYDROFOLATE REDUCTASE POLYMORPHISM
     Route: 064
     Dates: start: 2010, end: 20110227
  8. BABY ASPIRIN [Concomitant]
     Indication: METHYLENETETRAHYDROFOLATE REDUCTASE POLYMORPHISM
     Route: 063
     Dates: start: 20110227
  9. LOVENOX [Concomitant]
     Indication: METHYLENETETRAHYDROFOLATE REDUCTASE POLYMORPHISM
     Route: 064
     Dates: start: 2010, end: 20110227
  10. LOVENOX [Concomitant]
     Indication: METHYLENETETRAHYDROFOLATE REDUCTASE POLYMORPHISM
     Route: 063
     Dates: start: 20110227
  11. CLONAZEPAM [Concomitant]
     Indication: CONVULSION
     Dosage: TOTAL DAILY DOSE: 50 MG
     Route: 064
     Dates: start: 2010, end: 20110227
  12. CLONAZEPAM [Concomitant]
     Indication: CONVULSION
     Dosage: TOTAL DAILY DOSE: 50 MG
     Route: 063
     Dates: start: 20110227

REACTIONS (7)
  - Penis disorder [Not Recovered/Not Resolved]
  - Microcephaly [Unknown]
  - Language disorder [Unknown]
  - Underweight [Unknown]
  - Body height below normal [Unknown]
  - Foetal exposure during pregnancy [Recovered/Resolved]
  - Exposure during breast feeding [Recovered/Resolved]
